FAERS Safety Report 8657514 (Version 4)
Quarter: 2012Q4

REPORT INFORMATION
  Report Type: 
  Country: DE (occurrence: NL)
  Receive Date: 20120710
  Receipt Date: 20120912
  Transmission Date: 20130627
  Serious: Yes (Hospitalization, Other)
  Sender: FDA-Public Use
  Company Number: NL-GENZYME-CAMP-1002238

PATIENT
  Age: 54 Year
  Sex: Male

DRUGS (9)
  1. MABCAMPATH [Suspect]
     Indication: T-CELL LYMPHOMA
     Dosage: 30 mg, qd
     Route: 058
     Dates: start: 20120229, end: 20120404
  2. CYCLOPHOSPHAMIDE [Suspect]
     Indication: T-CELL LYMPHOMA
     Dosage: 1600 mg/m2, qd
     Route: 042
     Dates: start: 20120229, end: 20120404
  3. DOXORUBICIN [Suspect]
     Indication: T-CELL LYMPHOMA
     Dosage: 106 mg, qd, cycle 3
     Route: 042
     Dates: start: 20120229, end: 20120404
  4. VINCRISTINE [Suspect]
     Indication: T-CELL LYMPHOMA
     Dosage: 2 mg, qd, cycle 3
     Route: 042
     Dates: start: 20120222, end: 20120404
  5. PREDNISONE [Suspect]
     Indication: T-CELL LYMPHOMA
     Dosage: 100 mg, qd
     Route: 048
     Dates: start: 20120229, end: 20120404
  6. FLUCONAZOLE [Concomitant]
     Indication: PROPHYLAXIS
     Dosage: 400 mg, qd
     Route: 048
     Dates: start: 20120416
  7. ESOMEPRAZOLE [Concomitant]
     Indication: PRODUCT USED FOR UNKNOWN INDICATION
     Dosage: 40 mg, qd
     Route: 048
     Dates: start: 20120416
  8. TRIMETHOPRIM [Concomitant]
     Indication: PROPHYLAXIS
     Dosage: 960 mg, qd
     Route: 048
     Dates: start: 20120416
  9. VALACICLOVIR [Concomitant]
     Indication: ANTIVIRAL PROPHYLAXIS
     Dosage: 500 mg, bid
     Route: 048
     Dates: start: 20120416

REACTIONS (2)
  - Mesenteric artery thrombosis [Recovered/Resolved]
  - Ileus [Recovered/Resolved]
